FAERS Safety Report 17597961 (Version 6)
Quarter: 2022Q2

REPORT INFORMATION
  Report Type: Other
  Country: CA (occurrence: None)
  Receive Date: 20200330
  Receipt Date: 20220523
  Transmission Date: 20220721
  Serious: Yes (Other)
  Sender: FDA-Public Use
  Company Number: CA-ROCHE-2570143

PATIENT
  Age: 53 Year
  Sex: Female

DRUGS (8)
  1. OCREVUS [Suspect]
     Active Substance: OCRELIZUMAB
     Indication: Primary progressive multiple sclerosis
     Dosage: DAY 0, 14 THEN 600 MG Q6M (CONCENTRATE FOR INTRAVENOUS INFUSION)
     Route: 042
     Dates: start: 20200309
  2. ACYCLOVIR [Concomitant]
     Active Substance: ACYCLOVIR
  3. QUETIAPINE [Concomitant]
     Active Substance: QUETIAPINE
  4. WELLBUTRIN [Concomitant]
     Active Substance: BUPROPION HYDROCHLORIDE
  5. AMANTADINE [Concomitant]
     Active Substance: AMANTADINE
  6. TRAZODONE [Concomitant]
     Active Substance: TRAZODONE HYDROCHLORIDE
  7. BACLOFEN [Concomitant]
     Active Substance: BACLOFEN
  8. OXYBUTYNIN [Concomitant]
     Active Substance: OXYBUTYNIN

REACTIONS (7)
  - Oral herpes [Recovering/Resolving]
  - Genital herpes [Recovering/Resolving]
  - Infusion related reaction [Not Recovered/Not Resolved]
  - Urinary tract infection [Recovering/Resolving]
  - Muscle spasms [Not Recovered/Not Resolved]
  - Herpes virus infection [Not Recovered/Not Resolved]
  - Headache [Recovering/Resolving]

NARRATIVE: CASE EVENT DATE: 20200309
